FAERS Safety Report 11186095 (Version 2)
Quarter: 2015Q4

REPORT INFORMATION
  Report Type: Spontaneous
  Country: AT (occurrence: AT)
  Receive Date: 20150612
  Receipt Date: 20151216
  Transmission Date: 20160304
  Serious: Yes (Other)
  Sender: FDA-Public Use
  Company Number: AT-ELI_LILLY_AND_COMPANY-AT201506001136

PATIENT
  Age: 54 Year
  Sex: Female

DRUGS (29)
  1. ZYPREXA [Suspect]
     Active Substance: OLANZAPINE
     Dosage: 30 MG, UNKNOWN
     Route: 048
     Dates: start: 20140903, end: 20140920
  2. TEMESTA                            /00273201/ [Concomitant]
     Active Substance: LORAZEPAM
     Dosage: 3 MG, UNKNOWN
     Route: 065
     Dates: start: 20140828, end: 20140828
  3. PRAXITEN [Concomitant]
     Active Substance: OXAZEPAM
     Dosage: 72.5 MG, UNKNOWN
     Route: 065
     Dates: start: 20141011, end: 20141014
  4. DOMINAL (PROTHIPENDYL HYDROCHLORIDE) [Concomitant]
     Active Substance: PROTHIPENDYL HYDROCHLORIDE
     Dosage: 80 MG, UNKNOWN
     Route: 065
     Dates: start: 20140909, end: 20140911
  5. CIPRALEX [Concomitant]
     Active Substance: ESCITALOPRAM OXALATE
     Dosage: 5 MG, UNKNOWN
     Route: 065
     Dates: start: 20141014, end: 20141029
  6. SEROQUEL [Suspect]
     Active Substance: QUETIAPINE FUMARATE
     Dosage: 200 MG, UNKNOWN
     Route: 065
     Dates: start: 20140910, end: 20140921
  7. DEPAKINE                           /00228501/ [Concomitant]
     Active Substance: VALPROIC ACID
     Dosage: 1000 MG, UNKNOWN
     Route: 065
     Dates: start: 20140912, end: 20140915
  8. ZYPREXA [Suspect]
     Active Substance: OLANZAPINE
     Dosage: 5 MG, UNKNOWN
     Route: 048
     Dates: start: 20140924, end: 20140924
  9. TEMESTA                            /00273201/ [Concomitant]
     Active Substance: LORAZEPAM
     Dosage: 4 MG, UNKNOWN
     Route: 065
     Dates: start: 20140829, end: 20140903
  10. PRAXITEN [Concomitant]
     Active Substance: OXAZEPAM
     Dosage: 100 MG, UNKNOWN
     Route: 065
     Dates: start: 20141020, end: 20141027
  11. ZYPREXA [Suspect]
     Active Substance: OLANZAPINE
     Dosage: 20 MG, UNKNOWN
     Route: 048
     Dates: start: 20140930, end: 20141012
  12. PRAXITEN [Concomitant]
     Active Substance: OXAZEPAM
     Dosage: 100 MG, UNKNOWN
     Route: 065
     Dates: start: 20140915, end: 20140928
  13. DEPAKINE                           /00228501/ [Concomitant]
     Active Substance: VALPROIC ACID
     Dosage: 1500 MG, UNKNOWN
     Route: 065
     Dates: start: 20140916, end: 20140918
  14. DEPAKINE                           /00228501/ [Concomitant]
     Active Substance: VALPROIC ACID
     Dosage: 2000 MG, UNKNOWN
     Route: 065
     Dates: start: 20140919, end: 20140919
  15. DEPAKINE                           /00228501/ [Concomitant]
     Active Substance: VALPROIC ACID
     Dosage: 1500 MG, UNKNOWN
     Route: 065
     Dates: start: 20140920
  16. ABILIFY [Concomitant]
     Active Substance: ARIPIPRAZOLE
     Dosage: 15 MG, UNKNOWN
     Route: 065
     Dates: start: 20140925, end: 20140929
  17. ZYPREXA [Suspect]
     Active Substance: OLANZAPINE
     Dosage: 15 MG, UNKNOWN
     Route: 048
     Dates: start: 20140921, end: 20140923
  18. SEROQUEL [Suspect]
     Active Substance: QUETIAPINE FUMARATE
     Indication: PRODUCT USED FOR UNKNOWN INDICATION
     Dosage: 100 MG, UNKNOWN
     Route: 065
     Dates: start: 20140908, end: 20140909
  19. TEMESTA                            /00273201/ [Concomitant]
     Active Substance: LORAZEPAM
     Dosage: 5.5 MG, UNKNOWN
     Route: 065
     Dates: start: 20140904, end: 20140911
  20. TEMESTA                            /00273201/ [Concomitant]
     Active Substance: LORAZEPAM
     Dosage: 8 MG, UNKNOWN
     Route: 065
     Dates: start: 20140912, end: 20140914
  21. PRAXITEN [Concomitant]
     Active Substance: OXAZEPAM
     Dosage: 57.5 MG, UNKNOWN
     Route: 065
     Dates: start: 20141007, end: 20141010
  22. PRAXITEN [Concomitant]
     Active Substance: OXAZEPAM
     Dosage: 90 MG, UNKNOWN
     Route: 065
     Dates: start: 20141020
  23. ABILIFY [Concomitant]
     Active Substance: ARIPIPRAZOLE
     Dosage: 20 MG, UNKNOWN
     Route: 065
     Dates: start: 20140930, end: 20140930
  24. ZYPREXA [Suspect]
     Active Substance: OLANZAPINE
     Indication: SCHIZOAFFECTIVE DISORDER
     Dosage: 15 MG, UNKNOWN
     Route: 048
     Dates: start: 20140829, end: 20140902
  25. ZYPREXA [Suspect]
     Active Substance: OLANZAPINE
     Dosage: 25 MG, UNKNOWN
     Route: 048
     Dates: start: 20141013
  26. SEROQUEL [Suspect]
     Active Substance: QUETIAPINE FUMARATE
     Dosage: 100 MG, UNKNOWN
     Route: 065
     Dates: start: 20140922, end: 20141016
  27. PAROXAT [Suspect]
     Active Substance: PAROXETINE HYDROCHLORIDE
     Indication: PRODUCT USED FOR UNKNOWN INDICATION
     Dosage: 20 MG, UNKNOWN
     Route: 065
     Dates: end: 20140917
  28. PRAXITEN [Concomitant]
     Active Substance: OXAZEPAM
     Dosage: 80 MG, UNKNOWN
     Route: 065
     Dates: start: 20140929, end: 20141006
  29. PRAXITEN [Concomitant]
     Active Substance: OXAZEPAM
     Dosage: 50 MG, UNKNOWN
     Route: 065
     Dates: start: 20141015, end: 20141019

REACTIONS (13)
  - Restless legs syndrome [Recovered/Resolved]
  - Blood cholesterol increased [Not Recovered/Not Resolved]
  - Somnambulism [Recovered/Resolved]
  - Sedation [Recovered/Resolved]
  - Overdose [Not Recovered/Not Resolved]
  - Blood triglycerides increased [Recovered/Resolved]
  - Gamma-glutamyltransferase increased [Recovered/Resolved]
  - Drug level increased [Recovered/Resolved]
  - Neutrophil count increased [Recovered/Resolved]
  - Alanine aminotransferase increased [Recovered/Resolved]
  - Platelet count decreased [Recovered/Resolved]
  - Insomnia [Recovered/Resolved]
  - Head injury [Recovered/Resolved]

NARRATIVE: CASE EVENT DATE: 20140908
